FAERS Safety Report 6104092-3 (Version None)
Quarter: 2009Q1

REPORT INFORMATION
  Report Type: 
  Country: None (occurrence: None)
  Receive Date: 20090305
  Receipt Date: 20080916
  Transmission Date: 20090719
  Serious: Yes (Life-Threatening, Hospitalization)
  Sender: FDA-Public Use
  Company Number: DE-PFIZER INC-2008072133

PATIENT

DRUGS (4)
  1. SUNITINIB MALATE [Suspect]
     Indication: OVARIAN CANCER
     Dosage: 50 MG, 1X/DAY
     Route: 048
     Dates: start: 20080612
  2. LEVOTHYROXINE SODIUM [Concomitant]
     Route: 048
     Dates: start: 20020701
  3. PANTOZOL [Concomitant]
     Route: 048
     Dates: start: 20080714
  4. TILIDINE HYDROCHLORIDE [Concomitant]
     Dosage: UNK
     Route: 048
     Dates: start: 20080710

REACTIONS (2)
  - ILEUS [None]
  - SEPTIC SHOCK [None]
